FAERS Safety Report 9201738 (Version 2)
Quarter: 2013Q2

REPORT INFORMATION
  Report Type: Spontaneous
  Country: IT (occurrence: None)
  Receive Date: 20130327
  Receipt Date: 20130501
  Transmission Date: 20140414
  Serious: Yes (Life-Threatening, Other)
  Sender: FDA-Public Use
  Company Number: GER/ITL/13/0028612

PATIENT
  Age: 69 Year
  Sex: Female

DRUGS (1)
  1. CLOPIDOGREL [Suspect]
     Indication: PRODUCT USED FOR UNKNOWN INDICATION
     Route: 048
     Dates: start: 20121203, end: 20130124

REACTIONS (5)
  - Transient ischaemic attack [None]
  - Paraesthesia [None]
  - Product substitution issue [None]
  - Product quality issue [None]
  - Blood triglycerides increased [None]
